FAERS Safety Report 5190711-5 (Version None)
Quarter: 2006Q4

REPORT INFORMATION
  Report Type: 
  Country: None (occurrence: None)
  Receive Date: 20061222
  Receipt Date: 20060613
  Transmission Date: 20070319
  Serious: Yes (Hospitalization)
  Sender: FDA-Public Use
  Company Number: US-ROCHE-451866

PATIENT
  Age: 20 Year
  Sex: Male
  Weight: 68 kg

DRUGS (1)
  1. ACCUTANE [Suspect]
     Indication: ACNE
     Dosage: IN ALL, PATIENT TOOK THREE DOSES OF ISOTRETINOIN.
     Route: 065
     Dates: start: 20030113, end: 20030115

REACTIONS (57)
  - ABDOMINAL INJURY [None]
  - ABDOMINAL PAIN [None]
  - ABNORMAL BEHAVIOUR [None]
  - ACTIVITIES OF DAILY LIVING IMPAIRED [None]
  - ANXIETY [None]
  - ARTHRALGIA [None]
  - ASTHENIA [None]
  - BILE DUCT OBSTRUCTION [None]
  - BILE DUCT STENOSIS [None]
  - BILE OUTPUT INCREASED [None]
  - BILIARY DYSKINESIA [None]
  - BILIARY TRACT DISORDER [None]
  - BONE PAIN [None]
  - COLITIS [None]
  - DECREASED APPETITE [None]
  - DEPRESSION [None]
  - DISTRACTIBILITY [None]
  - DIZZINESS [None]
  - DYSPEPSIA [None]
  - DYSPNOEA [None]
  - EMOTIONAL DISTRESS [None]
  - FAMILY STRESS [None]
  - FATIGUE [None]
  - FIBROMYALGIA [None]
  - GALLBLADDER DISORDER [None]
  - GALLBLADDER INJURY [None]
  - GASTRITIS [None]
  - GASTROINTESTINAL DISORDER [None]
  - GASTROINTESTINAL INJURY [None]
  - GASTROOESOPHAGEAL REFLUX DISEASE [None]
  - HEADACHE [None]
  - IMPAIRED GASTRIC EMPTYING [None]
  - IMPAIRED WORK ABILITY [None]
  - INCREASED APPETITE [None]
  - INJURY [None]
  - IRRITABLE BOWEL SYNDROME [None]
  - JOINT INJURY [None]
  - LIVER DISORDER [None]
  - MALAISE [None]
  - MULTI-ORGAN DISORDER [None]
  - MUSCLE INJURY [None]
  - MYALGIA [None]
  - OESOPHAGEAL DISORDER [None]
  - PAIN [None]
  - PANCREATIC INJURY [None]
  - PANCREATITIS [None]
  - PANCREATITIS ACUTE [None]
  - PANIC ATTACK [None]
  - PANIC DISORDER [None]
  - PERFORMANCE FEAR [None]
  - PHYSICAL ASSAULT [None]
  - REFLUX GASTRITIS [None]
  - SKELETAL INJURY [None]
  - SOCIAL AVOIDANT BEHAVIOUR [None]
  - SOCIAL PHOBIA [None]
  - VOMITING [None]
  - WEIGHT DECREASED [None]
